FAERS Safety Report 13085179 (Version 1)
Quarter: 2017Q1

REPORT INFORMATION
  Report Type: Spontaneous
  Country: US (occurrence: US)
  Receive Date: 20170104
  Receipt Date: 20170104
  Transmission Date: 20170428
  Serious: Yes (Other)
  Sender: FDA-Public Use
  Company Number: US-AMGEN-USASP2016185063

PATIENT

DRUGS (1)
  1. ETANERCEPT [Suspect]
     Active Substance: ETANERCEPT
     Indication: LYMPHOMA
     Dosage: 25 MG, 2 TIMES/WK
     Route: 058

REACTIONS (2)
  - Off label use [Unknown]
  - Lymphopenia [Unknown]
